FAERS Safety Report 6667798-3 (Version None)
Quarter: 2010Q1

REPORT INFORMATION
  Report Type: 
  Country: None (occurrence: None)
  Receive Date: 20100331
  Receipt Date: 20100325
  Transmission Date: 20100710
  Serious: Yes (Death)
  Sender: FDA-Public Use
  Company Number: VISP-PR-1003S-0145

PATIENT
  Age: 72 Year
  Sex: Female

DRUGS (3)
  1. VISIPAQUE [Suspect]
     Indication: ANGIOPATHY
     Dosage: 36 ML, SINGLE DOSE, I.A.
     Route: 013
     Dates: start: 20100318, end: 20100318
  2. VERSED [Concomitant]
  3. FENTANYL [Concomitant]

REACTIONS (2)
  - RESUSCITATION [None]
  - UNRESPONSIVE TO STIMULI [None]
